FAERS Safety Report 8922300 (Version 1)
Quarter: 2012Q4

REPORT INFORMATION
  Report Type: Report from Study
  Country: US (occurrence: US)
  Receive Date: 20121123
  Receipt Date: 20121123
  Transmission Date: 20130627
  Serious: Yes (Other)
  Sender: FDA-Public Use
  Company Number: US-JNJFOC-20121109224

PATIENT
  Sex: Male
  Weight: 104.33 kg

DRUGS (6)
  1. REMICADE [Suspect]
     Indication: COLITIS ULCERATIVE
     Route: 042
     Dates: start: 20120919
  2. ASACOL [Concomitant]
     Route: 065
  3. LORTAB [Concomitant]
     Indication: BACK DISORDER
     Route: 065
  4. CSL [Concomitant]
     Indication: PROBIOTIC THERAPY
     Route: 065
  5. VITAMIN [Concomitant]
     Indication: BACK DISORDER
     Route: 065
  6. IRON [Concomitant]
     Indication: ANAEMIA
     Route: 065

REACTIONS (1)
  - Gastrointestinal stromal tumour [Not Recovered/Not Resolved]
